FAERS Safety Report 6194465-5 (Version None)
Quarter: 2009Q2

REPORT INFORMATION
  Report Type: 
  Country: None (occurrence: None)
  Receive Date: 20090514
  Receipt Date: 20090427
  Transmission Date: 20091009
  Serious: Yes (Death)
  Sender: FDA-Public Use
  Company Number: 225610

PATIENT
  Age: 11 Year
  Sex: Male

DRUGS (9)
  1. ETOPOSIDE [Suspect]
     Indication: ACUTE LYMPHOCYTIC LEUKAEMIA
     Dosage: 100,
  2. CYCLOPHOSPHAMIDE [Suspect]
     Indication: ACUTE LYMPHOCYTIC LEUKAEMIA
  3. CLOFARBINE [Suspect]
     Indication: ACUTE LYMPHOCYTIC LEUKAEMIA
     Dosage: 40 MG/M2, INTRAVENOUS
     Route: 042
     Dates: start: 20090105, end: 20090109
  4. DEXAMETHASONE 4MG TAB [Concomitant]
  5. LACTULOSE [Concomitant]
  6. LOPERAMIDE HCL [Concomitant]
  7. LORAZEPAM [Concomitant]
  8. METOCLOPRAMIDE [Concomitant]
  9. OMEPRAZOLE [Concomitant]

REACTIONS (11)
  - ABDOMINAL WALL DISORDER [None]
  - CORONA VIRUS INFECTION [None]
  - ENTEROCOCCAL INFECTION [None]
  - HEADACHE [None]
  - HEPATITIS CHOLESTATIC [None]
  - HYPERTENSION [None]
  - ILEUS [None]
  - LOSS OF CONSCIOUSNESS [None]
  - NEUTROPENIC COLITIS [None]
  - SEPSIS [None]
  - VOMITING [None]
